FAERS Safety Report 5133766-6 (Version None)
Quarter: 2006Q4

REPORT INFORMATION
  Report Type: 
  Country: None (occurrence: None)
  Receive Date: 20061018
  Receipt Date: 20061005
  Transmission Date: 20070319
  Serious: Yes (Other)
  Sender: FDA-Public Use
  Company Number: 2006123343

PATIENT
  Sex: Female

DRUGS (1)
  1. DOSTINEX [Suspect]
     Indication: PROGESTERONE INCREASED
     Dosage: 0.5 MG (0.5 MG, 1 IN 1 WK), ORAL
     Route: 048
     Dates: start: 20050101, end: 20050101

REACTIONS (1)
  - BRAIN NEOPLASM [None]
